FAERS Safety Report 9118029 (Version 1)
Quarter: 2013Q1

REPORT INFORMATION
  Report Type: Report from Study
  Country: US (occurrence: US)
  Receive Date: 20130129
  Receipt Date: 20130129
  Transmission Date: 20140127
  Serious: No
  Sender: FDA-Public Use
  Company Number: US-ABBOTT-12P-163-0941802-00

PATIENT
  Sex: Female

DRUGS (2)
  1. HUMIRA 40 MG/0.8 ML PEN [Suspect]
     Indication: RHEUMATOID ARTHRITIS
     Dates: start: 20120127
  2. HUMIRA 40 MG/0.8 ML PEN [Suspect]
     Indication: CROHN^S DISEASE

REACTIONS (5)
  - Cough [Recovered/Resolved]
  - Lip dry [Recovered/Resolved]
  - Dry mouth [Recovered/Resolved]
  - Swelling [Recovered/Resolved]
  - Musculoskeletal stiffness [Recovered/Resolved]
